FAERS Safety Report 19975353 (Version 1)
Quarter: 2021Q4

REPORT INFORMATION
  Report Type: Report from Study
  Country: US (occurrence: US)
  Receive Date: 20211020
  Receipt Date: 20211020
  Transmission Date: 20220303
  Serious: Yes (Other)
  Sender: FDA-Public Use
  Company Number: US-PFIZER INC-202101357429

PATIENT

DRUGS (2)
  1. SIROLIMUS [Suspect]
     Active Substance: SIROLIMUS
     Indication: Rhabdomyoma
     Dosage: 6 MG, DAILY(4 MG IN THE MORNING AND 2 MG IN THE EVENING)
     Route: 064
     Dates: start: 2019
  2. SIROLIMUS [Suspect]
     Active Substance: SIROLIMUS
     Dosage: 7 MG, DAILY (4 MG IN THE MORNING AND 3 MG IN THE EVENING)
     Route: 064
     Dates: start: 2019

REACTIONS (1)
  - Foetal growth restriction [Recovering/Resolving]
